FAERS Safety Report 16664156 (Version 1)
Quarter: 2019Q3

REPORT INFORMATION
  Report Type: Spontaneous
  Country: None (occurrence: US)
  Receive Date: 20190802
  Receipt Date: 20190802
  Transmission Date: 20191004
  Serious: Yes (Other)
  Sender: FDA-Public Use
  Company Number: US-MEDAC PHARMA, INC.-2072698

PATIENT
  Age: 62 Year
  Sex: Female

DRUGS (1)
  1. RASUVO [Suspect]
     Active Substance: METHOTREXATE SODIUM

REACTIONS (4)
  - Rash [Unknown]
  - Visual impairment [Unknown]
  - Vaginal discharge [Unknown]
  - Haemorrhage [Unknown]
